FAERS Safety Report 15890273 (Version 1)
Quarter: 2019Q1

REPORT INFORMATION
  Report Type: Report from Study
  Country: None (occurrence: CA)
  Receive Date: 20190130
  Receipt Date: 20190130
  Transmission Date: 20190417
  Serious: Yes (Other)
  Sender: FDA-Public Use
  Company Number: CA-ABBVIE-19K-028-2615607-00

PATIENT
  Age: 10 Year
  Sex: Female
  Weight: 38 kg

DRUGS (2)
  1. PREDNISONE. [Concomitant]
     Active Substance: PREDNISONE
     Indication: UVEITIS
     Route: 061
     Dates: start: 20151222
  2. HUMIRA [Suspect]
     Active Substance: ADALIMUMAB
     Indication: UVEITIS
     Route: 058
     Dates: start: 20160324

REACTIONS (2)
  - Influenza [Unknown]
  - Posterior capsule opacification [Not Recovered/Not Resolved]

NARRATIVE: CASE EVENT DATE: 201811
